FAERS Safety Report 5855847-1 (Version None)
Quarter: 2008Q3

REPORT INFORMATION
  Report Type: 
  Country: None (occurrence: None)
  Receive Date: 20080825
  Receipt Date: 20071127
  Transmission Date: 20090109
  Serious: No
  Sender: FDA-Public Use
  Company Number: A0696821A

PATIENT
  Sex: Male

DRUGS (1)
  1. MALARONE [Suspect]
     Indication: MALARIA PROPHYLAXIS
     Route: 065

REACTIONS (4)
  - ADVERSE EVENT [None]
  - GLOSSODYNIA [None]
  - ORAL DISCOMFORT [None]
  - TONGUE ULCERATION [None]
